FAERS Safety Report 13457606 (Version 1)
Quarter: 2017Q2

REPORT INFORMATION
  Report Type: Spontaneous
  Country: US (occurrence: US)
  Receive Date: 20170419
  Receipt Date: 20170419
  Transmission Date: 20170830
  Serious: No
  Sender: FDA-Public Use
  Company Number: US-AMGEN-USASP2017054499

PATIENT
  Sex: Female

DRUGS (2)
  1. ENBREL [Suspect]
     Active Substance: ETANERCEPT
     Indication: RHEUMATOID ARTHRITIS
     Dosage: 50 MG, QWK
     Route: 058
     Dates: start: 201701
  2. ENBREL [Suspect]
     Active Substance: ETANERCEPT
     Indication: BONE PAIN

REACTIONS (2)
  - Exostosis [Unknown]
  - Off label use [Unknown]

NARRATIVE: CASE EVENT DATE: 2017
